FAERS Safety Report 6420616-0 (Version None)
Quarter: 2009Q4

REPORT INFORMATION
  Report Type: 
  Country: None (occurrence: None)
  Receive Date: 20091027
  Receipt Date: 20091013
  Transmission Date: 20100525
  Serious: Yes (Other)
  Sender: FDA-Public Use
  Company Number: 1-20412226

PATIENT
  Age: 45 Year
  Sex: Female
  Weight: 63.5036 kg

DRUGS (2)
  1. METHYLPREDNISOLONE [Suspect]
     Indication: ASTHMA
     Dosage: 16 MG, ONCE, ORAL
     Route: 048
     Dates: start: 20081123, end: 20081123
  2. PREVACID [Concomitant]

REACTIONS (11)
  - ARRHYTHMIA [None]
  - BLOOD PRESSURE DIASTOLIC INCREASED [None]
  - CARDIAC DISORDER [None]
  - CHEST PAIN [None]
  - HEADACHE [None]
  - HYPERHIDROSIS [None]
  - PALPITATIONS [None]
  - SUPRAVENTRICULAR TACHYCARDIA [None]
  - TONGUE DISORDER [None]
  - TROPONIN INCREASED [None]
  - WEIGHT INCREASED [None]
